FAERS Safety Report 25460803 (Version 1)
Quarter: 2025Q2

REPORT INFORMATION
  Report Type: Spontaneous
  Country: US (occurrence: US)
  Receive Date: 20250620
  Receipt Date: 20250620
  Transmission Date: 20250717
  Serious: No
  Sender: LEXICON PHARMACEUTICALS
  Company Number: US-LEX-000764

PATIENT
  Age: 50 Year
  Sex: Female

DRUGS (1)
  1. INPEFA [Suspect]
     Active Substance: SOTAGLIFLOZIN
     Indication: Cardiomyopathy
     Route: 048
     Dates: start: 20240806, end: 2025

REACTIONS (1)
  - Renal pain [Recovered/Resolved]
